FAERS Safety Report 24082421 (Version 1)
Quarter: 2024Q3

REPORT INFORMATION
  Report Type: Spontaneous
  Country: US (occurrence: US)
  Receive Date: 20240712
  Receipt Date: 20240712
  Transmission Date: 20241016
  Serious: Yes (Hospitalization, Other)
  Sender: ROCHE
  Company Number: US-ROCHE-10000014755

PATIENT
  Sex: Female

DRUGS (1)
  1. NIVOLUMAB [Suspect]
     Active Substance: NIVOLUMAB
     Indication: Neoplasm malignant
     Route: 042
     Dates: start: 20240521

REACTIONS (4)
  - Pneumonia [Unknown]
  - Hypoxia [Unknown]
  - Wheezing [Unknown]
  - Hypotension [Unknown]

NARRATIVE: CASE EVENT DATE: 20240618
